FAERS Safety Report 7582546-0 (Version None)
Quarter: 2011Q2

REPORT INFORMATION
  Report Type: 
  Country: None (occurrence: None)
  Receive Date: 20110630
  Receipt Date: 20110624
  Transmission Date: 20111010
  Serious: Yes (Other)
  Sender: FDA-Public Use
  Company Number: US-PFIZER INC-2011142295

PATIENT
  Sex: Male

DRUGS (1)
  1. CHANTIX [Suspect]
     Dosage: UNK
     Dates: start: 20070201

REACTIONS (6)
  - MENTAL DISORDER [None]
  - PSYCHOTIC BEHAVIOUR [None]
  - ANXIETY [None]
  - DEPRESSION [None]
  - AMNESIA [None]
  - AGGRESSION [None]
